FAERS Safety Report 14730904 (Version 1)
Quarter: 2018Q2

REPORT INFORMATION
  Report Type: Spontaneous
  Country: US (occurrence: US)
  Receive Date: 20180406
  Receipt Date: 20180406
  Transmission Date: 20180711
  Serious: Yes (Other)
  Sender: FDA-Public Use
  Company Number: US-ALLERGAN-1819447US

PATIENT
  Age: 24 Year
  Sex: Male

DRUGS (1)
  1. MESALAZINE UNK [Suspect]
     Active Substance: MESALAMINE
     Indication: COLITIS ULCERATIVE
     Dosage: UNK
     Route: 065
     Dates: start: 2014

REACTIONS (6)
  - Colitis [Unknown]
  - Vision blurred [Unknown]
  - Eye pain [Unknown]
  - Uveitis [Recovered/Resolved]
  - Anorectal disorder [Unknown]
  - Headache [Unknown]

NARRATIVE: CASE EVENT DATE: 2016
